FAERS Safety Report 8363253-3 (Version None)
Quarter: 2012Q2

REPORT INFORMATION
  Report Type: 
  Country: None (occurrence: None)
  Receive Date: 20120516
  Receipt Date: 20120508
  Transmission Date: 20120825
  Serious: Yes (Hospitalization)
  Sender: FDA-Public Use
  Company Number: US-UCBSA-057135

PATIENT
  Age: 23 Year
  Sex: Female
  Weight: 124.73 kg

DRUGS (13)
  1. LAMICTAL [Suspect]
     Indication: CONVULSION
     Route: 048
  2. ACTOS [Concomitant]
  3. HYDROCHLOROTHIAZIDE [Concomitant]
  4. MAXALT [Concomitant]
  5. LAMICTAL [Suspect]
     Route: 048
  6. TRILIPIX [Concomitant]
  7. NASONEX [Concomitant]
  8. MIRALAX [Concomitant]
  9. VIMPAT [Suspect]
     Route: 048
  10. SUDAFED 12 HOUR [Concomitant]
  11. VIMPAT [Suspect]
     Dosage: 100 MG IN AM AND 150 MG IN EVENING
     Route: 048
  12. XANAX [Concomitant]
  13. JANUMET [Concomitant]

REACTIONS (10)
  - SPEECH DISORDER [None]
  - CONFUSIONAL STATE [None]
  - APHASIA [None]
  - ANXIETY [None]
  - BALANCE DISORDER [None]
  - DRUG LEVEL DECREASED [None]
  - MENTAL IMPAIRMENT [None]
  - GRAND MAL CONVULSION [None]
  - CONVULSION [None]
  - RESPIRATORY ARREST [None]
